FAERS Safety Report 9643430 (Version 2)
Quarter: 2014Q1

REPORT INFORMATION
  Report Type: Spontaneous
  Country: US (occurrence: US)
  Receive Date: 20131024
  Receipt Date: 20140130
  Transmission Date: 20141002
  Serious: Yes (Death, Life-Threatening, Hospitalization)
  Sender: FDA-Public Use
  Company Number: US-B.I. PHARMACEUTICALS,INC./RIDGEFIELD-2013-BI-33966BP

PATIENT
  Age: 90 Year
  Sex: Female

DRUGS (10)
  1. PRADAXA [Suspect]
     Indication: CEREBROVASCULAR ACCIDENT PROPHYLAXIS
     Dosage: 300 MG
     Route: 048
     Dates: start: 2011, end: 201310
  2. PRADAXA [Suspect]
     Indication: ATRIAL FIBRILLATION
  3. PRADAXA [Suspect]
     Indication: CEREBROVASCULAR ACCIDENT
  4. BYSTOLIN [Concomitant]
     Indication: HYPERTENSION
     Dosage: 10 MG
  5. LISINOPRIL [Concomitant]
     Indication: HYPERTENSION
     Dosage: 40 MG
  6. LEVOTHYROXINE [Concomitant]
     Indication: HYPOTHYROIDISM
     Dosage: 125 MCG
  7. LASIX [Concomitant]
     Indication: CARDIAC FAILURE CHRONIC
     Dosage: 20 MG
  8. LASIX [Concomitant]
     Indication: HYPERTENSION
  9. VITAMIN D [Concomitant]
  10. TYLENOL [Concomitant]

REACTIONS (4)
  - Cerebrovascular accident [Fatal]
  - Brain stem stroke [Unknown]
  - Arthropathy [Unknown]
  - Haemarthrosis [Unknown]
